FAERS Safety Report 13665238 (Version 1)
Quarter: 2017Q2

REPORT INFORMATION
  Report Type: Spontaneous
  Country: US (occurrence: US)
  Receive Date: 20170619
  Receipt Date: 20170619
  Transmission Date: 20170830
  Serious: Yes (Disabling)
  Sender: FDA-Public Use
  Company Number: None

PATIENT
  Age: 52 Year
  Sex: Female
  Weight: 58.5 kg

DRUGS (2)
  1. KLONOPIN [Suspect]
     Active Substance: CLONAZEPAM
     Indication: NERVE INJURY
     Route: 048
  2. KLONOPIN [Suspect]
     Active Substance: CLONAZEPAM
     Indication: NEURALGIA
     Route: 048

REACTIONS (28)
  - Incorrect drug administration duration [None]
  - Brain injury [None]
  - Monoplegia [None]
  - Limb injury [None]
  - Diarrhoea [None]
  - Fear [None]
  - Paraesthesia [None]
  - Wound [None]
  - Alopecia [None]
  - Derealisation [None]
  - Weight increased [None]
  - Nervous system disorder [None]
  - Tooth fracture [None]
  - Paralysis [None]
  - Feeling abnormal [None]
  - Scar [None]
  - Neuralgia [None]
  - Immune system disorder [None]
  - Bed bug infestation [None]
  - Impaired healing [None]
  - Loss of personal independence in daily activities [None]
  - Cognitive disorder [None]
  - Depersonalisation/derealisation disorder [None]
  - Diplegia [None]
  - Fall [None]
  - Dysbacteriosis [None]
  - Staphylococcal infection [None]
  - Impaired work ability [None]
